FAERS Safety Report 18963290 (Version 2)
Quarter: 2021Q2

REPORT INFORMATION
  Report Type: Report from Study
  Country: CA (occurrence: CA)
  Receive Date: 20210303
  Receipt Date: 20210513
  Transmission Date: 20210717
  Serious: Yes (Death, Life-Threatening)
  Sender: FDA-Public Use
  Company Number: CA-HLS-202107136

PATIENT
  Age: 49 Year
  Sex: Male

DRUGS (1)
  1. CLOZARIL [Suspect]
     Active Substance: CLOZAPINE
     Indication: SCHIZOPHRENIA
     Dosage: 200 MG QAM AND 425 QHS
     Route: 048
     Dates: start: 19990429, end: 20210222

REACTIONS (2)
  - Cerebrovascular accident [Recovered/Resolved with Sequelae]
  - Assisted suicide [Fatal]

NARRATIVE: CASE EVENT DATE: 20201005
